FAERS Safety Report 24185362 (Version 3)
Quarter: 2025Q2

REPORT INFORMATION
  Report Type: Spontaneous
  Country: US (occurrence: US)
  Receive Date: 20240807
  Receipt Date: 20250512
  Transmission Date: 20250716
  Serious: No
  Sender: MERCK SHARP & DOHME LLC
  Company Number: US-PFIZER INC-PV202400102321

PATIENT
  Age: 56 Year
  Sex: Female

DRUGS (4)
  1. TUCATINIB [Suspect]
     Active Substance: TUCATINIB
     Indication: Breast cancer female
     Dosage: 50 MG TAKE 5 TABLETS BY MOUTH 2 (TWO) TIMES A DAY
     Route: 048
     Dates: start: 202406
  2. TUCATINIB [Suspect]
     Active Substance: TUCATINIB
     Indication: Breast cancer female
     Dosage: 150 MG; 2 TABLETS TWICE DAILY
  3. HERCEPTIN HYLECTA [Suspect]
     Active Substance: HYALURONIDASE-OYSK\TRASTUZUMAB
  4. XELODA [Suspect]
     Active Substance: CAPECITABINE

REACTIONS (8)
  - Stomatitis [Unknown]
  - Weight decreased [Unknown]
  - Eating disorder [Unknown]
  - Off label use [Unknown]
  - Tongue discolouration [Unknown]
  - Off label use [Unknown]
  - Skin discolouration [Unknown]
  - Product use issue [Unknown]
